FAERS Safety Report 4322277-3 (Version None)
Quarter: 2004Q1

REPORT INFORMATION
  Report Type: 
  Country: None (occurrence: None)
  Receive Date: 20040319
  Receipt Date: 20040305
  Transmission Date: 20041129
  Serious: Yes (Hospitalization, Other)
  Sender: FDA-Public Use
  Company Number: 2004015929

PATIENT
  Sex: Male

DRUGS (2)
  1. TIKOSYN [Suspect]
     Indication: ILL-DEFINED DISORDER
     Dosage: 500 MCG (BID), ORAL
     Route: 048
  2. PROPAFENONE HCL [Concomitant]

REACTIONS (1)
  - CHRONIC OBSTRUCTIVE AIRWAYS DISEASE [None]
